FAERS Safety Report 8811111 (Version 1)
Quarter: 2012Q4

REPORT INFORMATION
  Report Type: Spontaneous
  Country: US (occurrence: None)
  Receive Date: 20120925
  Receipt Date: 20120925
  Transmission Date: 20130627
  Serious: Yes (Other)
  Sender: FDA-Public Use
  Company Number: None

PATIENT
  Age: 53 Year
  Sex: Female
  Weight: 70.76 kg

DRUGS (1)
  1. ASTEPRO [Suspect]
     Dosage: 0.15% 2 spray 1 x daily, nasal
     Route: 045
     Dates: start: 20120504, end: 20120604

REACTIONS (2)
  - Migraine [None]
  - Drug abuser [None]
